FAERS Safety Report 19490852 (Version 1)
Quarter: 2021Q3

REPORT INFORMATION
  Report Type: Spontaneous
  Country: DE (occurrence: DE)
  Receive Date: 20210705
  Receipt Date: 20210705
  Transmission Date: 20211014
  Serious: Yes (Hospitalization)
  Sender: FDA-Public Use
  Company Number: DE-TEVA-2021-DE-1928289

PATIENT
  Age: 87 Year
  Sex: Female

DRUGS (8)
  1. ALENDRONIC ACID [Concomitant]
     Active Substance: ALENDRONIC ACID
     Dosage: 70 MG, ONCE A WEEK
     Route: 048
  2. APIXABAN [Concomitant]
     Active Substance: APIXABAN
     Dosage: 5 MILLIGRAM DAILY; 1?0?1?0
     Route: 048
  3. TORASEMID [Concomitant]
     Active Substance: TORSEMIDE
     Dosage: 10 MILLIGRAM DAILY; 1?0?0?0
     Route: 048
  4. RAMIPRIL. [Concomitant]
     Active Substance: RAMIPRIL
     Dosage: 10 MILLIGRAM DAILY; 1?0?1?0
     Route: 048
  5. METOPROLOL 95 MG [Suspect]
     Active Substance: METOPROLOL
     Dosage: 1 DOSAGE FORMS DAILY; 95 MG, 0.5?0?0.5?0
     Route: 048
  6. AMIODARON [Suspect]
     Active Substance: AMIODARONE
     Dosage: 200 MG, 1?0?0?0
     Route: 048
  7. ATORVASTATIN [Concomitant]
     Active Substance: ATORVASTATIN
     Dosage: 20 MILLIGRAM DAILY; 20 MG, 0?0?1?0
     Route: 048
  8. LEVOTHYROXINE SODIUM. [Concomitant]
     Active Substance: LEVOTHYROXINE SODIUM
     Dosage: 50 MICROGRAM DAILY; 1?0?0?0
     Route: 048

REACTIONS (7)
  - Dizziness [Unknown]
  - Fatigue [Unknown]
  - Chest discomfort [Unknown]
  - Asthenia [Unknown]
  - Hypotension [Unknown]
  - General physical health deterioration [Unknown]
  - Dyspnoea [Unknown]
